FAERS Safety Report 8598976-4 (Version None)
Quarter: 2012Q3

REPORT INFORMATION
  Report Type: 
  Country: None (occurrence: None)
  Receive Date: 20120816
  Receipt Date: 19960514
  Transmission Date: 20120928
  Serious: Yes (Hospitalization)
  Sender: FDA-Public Use
  Company Number: US-ROCHE-1100968

PATIENT
  Sex: Female

DRUGS (9)
  1. HEPARIN [Concomitant]
     Route: 042
  2. ACTIVASE [Suspect]
     Indication: ACUTE MYOCARDIAL INFARCTION
  3. IMDUR [Concomitant]
  4. NITROSTAT [Concomitant]
  5. ASPIRIN [Concomitant]
  6. MORPHINE SULFATE [Concomitant]
  7. ATENOLOL [Concomitant]
  8. LIDOCAINE [Concomitant]
  9. LANOXIN [Concomitant]

REACTIONS (2)
  - BLOOD CREATINE PHOSPHOKINASE INCREASED [None]
  - VENTRICULAR ARRHYTHMIA [None]
